FAERS Safety Report 7461173-X (Version None)
Quarter: 2011Q2

REPORT INFORMATION
  Report Type: 
  Country: None (occurrence: None)
  Receive Date: 20110505
  Receipt Date: 20110425
  Transmission Date: 20111010
  Serious: Yes (Disabling, Other)
  Sender: FDA-Public Use
  Company Number: US-ASTRAZENECA-2011SE10929

PATIENT
  Age: 52 Year
  Sex: Female

DRUGS (1)
  1. SEROQUEL [Suspect]
     Indication: SLEEP DISORDER
     Route: 048

REACTIONS (7)
  - NASOPHARYNGITIS [None]
  - DRUG DOSE OMISSION [None]
  - CONVULSION [None]
  - THROMBOSIS [None]
  - MULTIPLE SCLEROSIS [None]
  - OFF LABEL USE [None]
  - WHEELCHAIR USER [None]
